FAERS Safety Report 7861475-9 (Version None)
Quarter: 2011Q4

REPORT INFORMATION
  Report Type: 
  Country: None (occurrence: None)
  Receive Date: 20111027
  Receipt Date: 20110921
  Transmission Date: 20120403
  Serious: Yes (Death, Hospitalization)
  Sender: FDA-Public Use
  Company Number: GB-PERRIGO-11GB007824

PATIENT
  Age: 20 Year
  Sex: Male

DRUGS (6)
  1. ANTIDEPRESSANTS [Suspect]
     Indication: COMPLETED SUICIDE
     Dosage: UNK
     Route: 048
  2. LOPERAMIDE [Suspect]
     Route: 048
  3. AMOXICILLIN [Suspect]
     Indication: COMPLETED SUICIDE
     Dosage: UNK
     Route: 048
  4. IRON [Suspect]
     Indication: COMPLETED SUICIDE
     Dosage: UNK
     Route: 048
  5. ACETAMINOPHEN [Suspect]
     Indication: COMPLETED SUICIDE
     Dosage: UNK
     Route: 048
  6. ERYTHROMYCIN [Suspect]
     Indication: COMPLETED SUICIDE
     Dosage: UNK
     Route: 048

REACTIONS (12)
  - BRAIN HERNIATION [None]
  - TOXICITY TO VARIOUS AGENTS [None]
  - SUICIDAL IDEATION [None]
  - ACUTE HEPATIC FAILURE [None]
  - SEPSIS [None]
  - CHOLESTASIS [None]
  - LIVER INJURY [None]
  - BRAIN OEDEMA [None]
  - DRUG INTERACTION [None]
  - HEPATIC NECROSIS [None]
  - MULTIPLE DRUG OVERDOSE [None]
  - INTRACRANIAL PRESSURE INCREASED [None]
